FAERS Safety Report 6830461-X (Version None)
Quarter: 2010Q3

REPORT INFORMATION
  Report Type: 
  Country: None (occurrence: None)
  Receive Date: 20100712
  Receipt Date: 20100701
  Transmission Date: 20110219
  Serious: No
  Sender: FDA-Public Use
  Company Number: US-BIOGENIDEC-2010BI022802

PATIENT
  Age: 20 Year
  Sex: Female

DRUGS (1)
  1. TYSABRI [Suspect]
     Indication: MULTIPLE SCLEROSIS
     Route: 042
     Dates: start: 20090508

REACTIONS (6)
  - ARTHRALGIA [None]
  - LOSS OF CONTROL OF LEGS [None]
  - MIGRAINE [None]
  - PAIN IN EXTREMITY [None]
  - POOR VENOUS ACCESS [None]
  - RASH [None]
